FAERS Safety Report 16963146 (Version 1)
Quarter: 2019Q4

REPORT INFORMATION
  Report Type: Spontaneous
  Country: CN (occurrence: CN)
  Receive Date: 20191025
  Receipt Date: 20191025
  Transmission Date: 20200122
  Serious: Yes (Other)
  Sender: FDA-Public Use
  Company Number: CN-ASTRAZENECA-2019SF50184

PATIENT
  Age: 3751 Week
  Sex: Female
  Weight: 44 kg

DRUGS (1)
  1. TAGRISSO [Suspect]
     Active Substance: OSIMERTINIB
     Indication: HEPATIC NEOPLASM
     Route: 048
     Dates: start: 20190708, end: 20191010

REACTIONS (4)
  - Skin fissures [Recovering/Resolving]
  - Skin ulcer [Recovering/Resolving]
  - Skin ulcer [Unknown]
  - Abscess limb [Recovering/Resolving]

NARRATIVE: CASE EVENT DATE: 20191010
